FAERS Safety Report 23392109 (Version 1)
Quarter: 2024Q1

REPORT INFORMATION
  Report Type: Spontaneous
  Country: CN (occurrence: None)
  Receive Date: 20240111
  Receipt Date: 20240111
  Transmission Date: 20240410
  Serious: Yes (Other)
  Sender: FDA-Public Use
  Company Number: 2024A005498

PATIENT
  Age: 45 Year
  Sex: Female

DRUGS (10)
  1. OSIMERTINIB [Suspect]
     Active Substance: OSIMERTINIB
     Indication: Lung adenocarcinoma stage IV
     Route: 048
     Dates: start: 202103
  2. PEMETREXED [Suspect]
     Active Substance: PEMETREXED
     Dates: start: 202103
  3. CARBOPLATIN [Suspect]
     Active Substance: CARBOPLATIN
     Dates: start: 202103
  4. GEMCITABINE [Suspect]
     Active Substance: GEMCITABINE
  5. BEVACIZUMAB [Suspect]
     Active Substance: BEVACIZUMAB
  6. AFATINIB [Concomitant]
     Active Substance: AFATINIB
     Dosage: (30 MG, ONCE A DAY)
     Dates: start: 202201
  7. FURMONERTINIB [Concomitant]
     Dosage: 80 MG, ONCE A DAY
     Dates: start: 20220428
  8. CRIZOTINIB [Concomitant]
     Active Substance: CRIZOTINIB
     Dosage: 250 MG, TWICE A DAY
     Dates: start: 20220428
  9. DOCETAXEL [Concomitant]
     Active Substance: DOCETAXEL\DOCETAXEL ANHYDROUS
  10. CATEQUENTINIB [Concomitant]
     Active Substance: CATEQUENTINIB

REACTIONS (3)
  - Malignant neoplasm progression [Unknown]
  - Acquired gene mutation [Unknown]
  - Metastases to central nervous system [Unknown]
